FAERS Safety Report 13780885 (Version 1)
Quarter: 2017Q3

REPORT INFORMATION
  Report Type: Spontaneous
  Country: FR (occurrence: FR)
  Receive Date: 20170724
  Receipt Date: 20170724
  Transmission Date: 20171127
  Serious: Yes (Hospitalization)
  Sender: FDA-Public Use
  Company Number: FR-ACCORD-056201

PATIENT
  Age: 72 Year
  Sex: Male

DRUGS (3)
  1. CALCIUM FOLINATE/FOLINIC ACID/SODIUM FOLINATE [Concomitant]
  2. FLUOROURACIL ACCORD [Suspect]
     Active Substance: FLUOROURACIL
     Indication: ADENOCARCINOMA OF COLON
     Dosage: 800 MG BOLUS, 2400 MG INFUSION OVER 46 HRS. FOR 15 DAYS
     Route: 042
     Dates: start: 20160920, end: 20161117
  3. OXALIPLATIN ACCORD [Suspect]
     Active Substance: OXALIPLATIN
     Indication: ADENOCARCINOMA OF COLON
     Route: 042
     Dates: start: 20160920, end: 20161115

REACTIONS (1)
  - Ischaemic stroke [Recovered/Resolved with Sequelae]

NARRATIVE: CASE EVENT DATE: 20161117
